FAERS Safety Report 8464536 (Version 3)
Quarter: 2013Q3

REPORT INFORMATION
  Report Type: Spontaneous
  Country: ES (occurrence: None)
  Receive Date: 20120312
  Receipt Date: 20130705
  Transmission Date: 20140515
  Serious: Yes (Death, Hospitalization)
  Sender: FDA-Public Use
  Company Number: ES-023764

PATIENT
  Age: 70 Year
  Sex: Male
  Weight: 84 kg

DRUGS (1)
  1. CHLORAMBUCIL [Suspect]
     Indication: CHRONIC LYMPHOCYTIC LEUKAEMIA
     Dosage: 42 MG, UNKNOWN, 1 IN 14 DAYS, PO
     Route: 048
     Dates: start: 20110512, end: 20110822

REACTIONS (3)
  - Respiratory tract infection [None]
  - Platelet count decreased [None]
  - Haemoglobin decreased [None]
